FAERS Safety Report 22085216 (Version 3)
Quarter: 2023Q2

REPORT INFORMATION
  Report Type: Spontaneous
  Country: DE (occurrence: DE)
  Receive Date: 20230310
  Receipt Date: 20230502
  Transmission Date: 20230721
  Serious: Yes (Hospitalization, Disabling, Other)
  Sender: FDA-Public Use
  Company Number: DE-DSJP-DSE-2023-109005

PATIENT
  Age: 42 Year
  Sex: Male
  Weight: 90 kg

DRUGS (9)
  1. EDOXABAN TOSYLATE [Suspect]
     Active Substance: EDOXABAN TOSYLATE
     Indication: Thrombosis prophylaxis
     Dosage: 60 MG, QD
     Route: 048
     Dates: start: 202109, end: 202209
  2. EDOXABAN TOSYLATE [Suspect]
     Active Substance: EDOXABAN TOSYLATE
     Indication: Venous thrombosis
  3. PANTOPRAZOLE [Concomitant]
     Active Substance: PANTOPRAZOLE
     Indication: Prophylaxis
     Dosage: 40 UNK UNITS, UNK
     Route: 048
     Dates: start: 202007
  4. COTRIMOXAZOLE [Concomitant]
     Active Substance: SULFAMETHOXAZOLE\TRIMETHOPRIM
     Indication: Prophylaxis
     Dosage: 960 UNK
     Route: 048
     Dates: start: 202007
  5. CHOLECALCIFEROL [Concomitant]
     Active Substance: CHOLECALCIFEROL
     Indication: Prophylaxis
     Dosage: 20000 UNK, ONCE EVERY 1 WK
     Route: 048
     Dates: start: 202007
  6. PREGABALIN [Concomitant]
     Active Substance: PREGABALIN
     Indication: Pain
     Dosage: 50 MG
     Route: 048
     Dates: start: 2021
  7. METAMIZOLE [Concomitant]
     Active Substance: METAMIZOLE
     Indication: Pain
     Dosage: 500 MG
     Route: 048
     Dates: start: 2021
  8. ACYCLOVIR [Concomitant]
     Active Substance: ACYCLOVIR
     Indication: Herpes zoster
     Dosage: 800 MG
     Route: 048
     Dates: start: 2022
  9. HYPROMELLOSES [Concomitant]
     Active Substance: HYPROMELLOSES
     Indication: Acne
     Dosage: 1-2 DROPS
     Route: 065
     Dates: start: 2022

REACTIONS (29)
  - Cerebral infarction [Unknown]
  - Disability [Unknown]
  - Embolic stroke [Unknown]
  - Cerebral infarction [Unknown]
  - Vascular stent occlusion [Unknown]
  - Viral infection [Unknown]
  - Dyspnoea [Unknown]
  - Pleural effusion [Unknown]
  - Embolism [Unknown]
  - Vascular stent stenosis [Unknown]
  - Superficial vein thrombosis [Unknown]
  - Cardiomegaly [Unknown]
  - Splenomegaly [Unknown]
  - Diverticulum intestinal [Unknown]
  - Arteriosclerosis [Unknown]
  - Renal cyst [Unknown]
  - Prostatic calcification [Unknown]
  - Cardio-respiratory distress [Unknown]
  - Depressed mood [Unknown]
  - Haematuria [Unknown]
  - Reticulocyte count increased [Unknown]
  - Blood lactate dehydrogenase increased [Unknown]
  - Free haemoglobin present [Unknown]
  - General physical health deterioration [Unknown]
  - Urinary tract infection [Unknown]
  - Atelectasis [Unknown]
  - Pain in extremity [Unknown]
  - Vein disorder [Unknown]
  - Treatment failure [Unknown]

NARRATIVE: CASE EVENT DATE: 20220901
